FAERS Safety Report 25614399 (Version 3)
Quarter: 2025Q3

REPORT INFORMATION
  Report Type: Report from Study
  Country: US (occurrence: US)
  Receive Date: 20250729
  Receipt Date: 20250819
  Transmission Date: 20251020
  Serious: Yes (Other)
  Sender: ABBVIE
  Company Number: US-ABBVIE-6381415

PATIENT
  Age: 70 Year
  Sex: Female

DRUGS (1)
  1. VYALEV [Suspect]
     Active Substance: FOSCARBIDOPA\FOSLEVODOPA
     Indication: Product used for unknown indication
     Route: 058
     Dates: start: 20250227

REACTIONS (10)
  - Disability [Not Recovered/Not Resolved]
  - Dysgraphia [Unknown]
  - Feeling abnormal [Unknown]
  - Tremor [Unknown]
  - Liquid product physical issue [Unknown]
  - Insomnia [Unknown]
  - Temperature intolerance [Unknown]
  - Gastrointestinal motility disorder [Unknown]
  - Drug ineffective [Recovered/Resolved]
  - Visual impairment [Unknown]

NARRATIVE: CASE EVENT DATE: 20250101
